FAERS Safety Report 9716924 (Version 2)
Quarter: 2015Q3

REPORT INFORMATION
  Report Type: Spontaneous
  Country: US (occurrence: US)
  Receive Date: 20131127
  Receipt Date: 20150803
  Transmission Date: 20151125
  Serious: No
  Sender: FDA-Public Use
  Company Number: US-GILEAD-2009-0019931

PATIENT
  Age: 61 Year
  Sex: Male
  Weight: 99.79 kg

DRUGS (10)
  1. POTASSIUM CHLORIDE. [Concomitant]
     Active Substance: POTASSIUM CHLORIDE
  2. CALCIUM [Concomitant]
     Active Substance: CALCIUM
  3. LETAIRIS [Suspect]
     Active Substance: AMBRISENTAN
     Indication: PULMONARY ARTERIAL HYPERTENSION
     Route: 048
     Dates: start: 20081203, end: 20090121
  4. COZAAR [Concomitant]
     Active Substance: LOSARTAN POTASSIUM
  5. MULTIVITAMIN [Concomitant]
     Active Substance: VITAMINS
  6. COUMADIN [Concomitant]
     Active Substance: WARFARIN SODIUM
  7. COREG [Concomitant]
     Active Substance: CARVEDILOL
  8. LASIX [Concomitant]
     Active Substance: FUROSEMIDE
  9. LEVOTHYROXINE. [Concomitant]
     Active Substance: LEVOTHYROXINE
  10. CORDARONE [Concomitant]
     Active Substance: AMIODARONE HYDROCHLORIDE

REACTIONS (1)
  - Fluid retention [Unknown]
